FAERS Safety Report 9209428 (Version 1)
Quarter: 2013Q2

REPORT INFORMATION
  Report Type: Spontaneous
  Country: US (occurrence: None)
  Receive Date: 20130403
  Receipt Date: 20130403
  Transmission Date: 20140414
  Serious: Yes (Hospitalization, Disabling)
  Sender: FDA-Public Use
  Company Number: None

PATIENT
  Age: 31 Year
  Sex: Female
  Weight: 56.7 kg

DRUGS (3)
  1. GABAPENTIN [Suspect]
     Indication: MIGRAINE
     Dosage: 100 MG   1   ORAL
     Route: 048
  2. GABAPENTIN [Suspect]
     Indication: MOOD ALTERED
     Dosage: 100 MG   1   ORAL
     Route: 048
  3. CIPROFLAXIN [Suspect]
     Dosage: 2 X D  ORAL
     Route: 048

REACTIONS (10)
  - Weight decreased [None]
  - Nausea [None]
  - Heart rate increased [None]
  - Hypovitaminosis [None]
  - Migraine [None]
  - Headache [None]
  - Pain [None]
  - Constipation [None]
  - No reaction on previous exposure to drug [None]
  - Vomiting [None]
